FAERS Safety Report 8767917 (Version 1)
Quarter: 2012Q4

REPORT INFORMATION
  Report Type: 
  Country: GB (occurrence: GB)
  Receive Date: 20120905
  Receipt Date: 20120905
  Transmission Date: 20130627
  Serious: Yes (Disabling)
  Sender: FDA-Public Use
  Company Number: PHHY2012GB075303

PATIENT
  Age: 54 Year
  Sex: Male
  Weight: 139.7 kg

DRUGS (1)
  1. AMLODIPINE MALEATE [Suspect]
     Indication: HYPERTENSION
     Dosage: 5 mg, QD
     Route: 048
     Dates: start: 20120412

REACTIONS (1)
  - Eczema [Not Recovered/Not Resolved]
